FAERS Safety Report 7625583-X (Version None)
Quarter: 2011Q3

REPORT INFORMATION
  Report Type: 
  Country: None (occurrence: None)
  Receive Date: 20110713
  Receipt Date: 20110707
  Transmission Date: 20111222
  Serious: Yes (Other)
  Sender: FDA-Public Use
  Company Number: 2009SP023477

PATIENT
  Age: 21 Year
  Sex: Female
  Weight: 68.0396 kg

DRUGS (1)
  1. NUVARING [Suspect]
     Indication: CONTRACEPTION
     Dosage: 1 DF
     Dates: start: 20081201, end: 20090101

REACTIONS (7)
  - DEEP VEIN THROMBOSIS [None]
  - TRICHOMONIASIS [None]
  - PREGNANCY [None]
  - THROMBOSIS [None]
  - COAGULOPATHY [None]
  - MATERNAL EXPOSURE BEFORE PREGNANCY [None]
  - MIGRAINE [None]
